FAERS Safety Report 25887601 (Version 1)
Quarter: 2025Q4

REPORT INFORMATION
  Report Type: Spontaneous
  Country: EU (occurrence: EU)
  Receive Date: 20251007
  Receipt Date: 20251007
  Transmission Date: 20260118
  Serious: Yes (Hospitalization, Other)
  Sender: CHEPLAPHARM
  Company Number: EU-AstraZeneca-2023A190575

PATIENT
  Age: 28 Year
  Sex: Female

DRUGS (5)
  1. QUETIAPINE [Suspect]
     Active Substance: QUETIAPINE
     Indication: Anxiety
     Route: 048
  2. NIFEDIPINE [Suspect]
     Active Substance: NIFEDIPINE
     Indication: Tocolysis
  3. FLUOXETINE [Suspect]
     Active Substance: FLUOXETINE HYDROCHLORIDE
     Dosage: DAILY DOSE: 20 MILLIGRAM
  4. VITAMINS [Suspect]
     Active Substance: VITAMINS
  5. DEXAMETHASONE [Suspect]
     Active Substance: DEXAMETHASONE

REACTIONS (10)
  - Dysuria [Unknown]
  - Diarrhoea [Unknown]
  - Supraventricular tachycardia [Recovered/Resolved]
  - Haemodynamic instability [Unknown]
  - Hypokalaemia [Unknown]
  - Exposure during pregnancy [Unknown]
  - Hypocalcaemia [Unknown]
  - Metabolic acidosis [Unknown]
  - Hyperlactacidaemia [Unknown]
  - Bradycardia [Recovered/Resolved]
